FAERS Safety Report 17653170 (Version 1)
Quarter: 2020Q2

REPORT INFORMATION
  Report Type: Spontaneous
  Country: FR (occurrence: FR)
  Receive Date: 20200410
  Receipt Date: 20200410
  Transmission Date: 20200713
  Serious: Yes (Hospitalization)
  Sender: FDA-Public Use
  Company Number: FR-SUN PHARMACEUTICAL INDUSTRIES LTD-2020RR-243562

PATIENT
  Age: 70 Year
  Sex: Female
  Weight: 50.9 kg

DRUGS (1)
  1. RISPERIDONE. [Suspect]
     Active Substance: RISPERIDONE
     Indication: PRODUCT ADMINISTRATION ERROR
     Dosage: 8 MILLIGRAM, UNK
     Route: 048
     Dates: start: 20200221, end: 20200221

REACTIONS (3)
  - Product administration error [Recovered/Resolved]
  - Hypotension [Recovered/Resolved]
  - Coma [Recovered/Resolved]

NARRATIVE: CASE EVENT DATE: 20200221
